FAERS Safety Report 19694228 (Version 1)
Quarter: 2021Q3

REPORT INFORMATION
  Report Type: Spontaneous
  Country: US (occurrence: US)
  Receive Date: 20210813
  Receipt Date: 20210813
  Transmission Date: 20211014
  Serious: No
  Sender: FDA-Public Use
  Company Number: US-009507513-2108USA000101

PATIENT
  Sex: Female

DRUGS (7)
  1. BELSOMRA [Suspect]
     Active Substance: SUVOREXANT
     Indication: INSOMNIA
     Dosage: WITH THE 10MG, 15MG AND 20MG STRENGTHS
     Route: 048
     Dates: start: 2016
  2. BELSOMRA [Suspect]
     Active Substance: SUVOREXANT
     Dosage: BREAKING THE PILLS IN HALF
     Route: 048
  3. TOPIRAMATE. [Concomitant]
     Active Substance: TOPIRAMATE
  4. CITALOPRAM [Concomitant]
     Active Substance: CITALOPRAM HYDROBROMIDE
  5. DULOXETINE. [Concomitant]
     Active Substance: DULOXETINE
  6. TRAMADOL. [Concomitant]
     Active Substance: TRAMADOL
  7. COMPAZINE [Concomitant]
     Active Substance: PROCHLORPERAZINE MALEATE

REACTIONS (2)
  - Wrong technique in product usage process [Unknown]
  - Drug ineffective [Not Recovered/Not Resolved]
